FAERS Safety Report 17006559 (Version 2)
Quarter: 2019Q4

REPORT INFORMATION
  Report Type: Spontaneous
  Country: KR (occurrence: KR)
  Receive Date: 20191107
  Receipt Date: 20191120
  Transmission Date: 20200122
  Serious: Yes (Hospitalization)
  Sender: FDA-Public Use
  Company Number: KR-ALLERGAN-1944945US

PATIENT
  Sex: Male

DRUGS (1)
  1. SILODOSIN - BP [Suspect]
     Active Substance: SILODOSIN
     Indication: PRODUCT USED FOR UNKNOWN INDICATION
     Dosage: UNK
     Route: 048
     Dates: start: 201907

REACTIONS (4)
  - Dizziness postural [Recovered/Resolved]
  - Dyspepsia [Recovered/Resolved]
  - Decreased appetite [Unknown]
  - Syncope [Unknown]

NARRATIVE: CASE EVENT DATE: 2019
